FAERS Safety Report 9776780 (Version 2)
Quarter: 2014Q1

REPORT INFORMATION
  Report Type: Spontaneous
  Country: GB (occurrence: GB)
  Receive Date: 20131220
  Receipt Date: 20140319
  Transmission Date: 20141002
  Serious: Yes (Other)
  Sender: FDA-Public Use
  Company Number: GB-009507513-1312GBR009252

PATIENT
  Age: 24 Year
  Sex: Female

DRUGS (2)
  1. ETONOGESTREL IMPLANT- UNKNOWN [Suspect]
     Indication: CONTRACEPTION
     Dosage: UNK
     Route: 058
     Dates: start: 201204, end: 20131105
  2. ETONOGESTREL IMPLANT- UNKNOWN [Suspect]
     Dosage: UNK
     Dates: start: 2013

REACTIONS (1)
  - Device breakage [Unknown]
